FAERS Safety Report 8463842 (Version 2)
Quarter: 2012Q4

REPORT INFORMATION
  Report Type: 
  Country: US (occurrence: US)
  Receive Date: 20120316
  Receipt Date: 20121004
  Transmission Date: 20130627
  Serious: Yes (Hospitalization)
  Sender: FDA-Public Use
  Company Number: PHEH2012US005701

PATIENT
  Age: 51 Year
  Sex: Female

DRUGS (1)
  1. GILENYA [Suspect]
     Indication: MULTIPLE SCLEROSIS
     Dosage: 0.5 mg, QD
     Route: 048
     Dates: start: 201202, end: 20120306

REACTIONS (5)
  - Chest pain [Unknown]
  - Oedema peripheral [Unknown]
  - Feeling abnormal [Unknown]
  - Cognitive disorder [Unknown]
  - Asthenia [Unknown]
